FAERS Safety Report 9404051 (Version 1)
Quarter: 2013Q3

REPORT INFORMATION
  Report Type: Spontaneous
  Country: JP (occurrence: None)
  Receive Date: 20130712
  Receipt Date: 20130712
  Transmission Date: 20140515
  Serious: Yes (Hospitalization)
  Sender: FDA-Public Use
  Company Number: SYM-2013-06232

PATIENT
  Age: 60 Year
  Sex: Female

DRUGS (1)
  1. MESTINON [Suspect]
     Indication: MYASTHENIA GRAVIS

REACTIONS (5)
  - Eyelid ptosis [None]
  - Respiratory failure [None]
  - Cholinergic syndrome [None]
  - Miosis [None]
  - Salivary hypersecretion [None]
